FAERS Safety Report 7380040-3 (Version None)
Quarter: 2011Q1

REPORT INFORMATION
  Report Type: 
  Country: None (occurrence: None)
  Receive Date: 20110318
  Receipt Date: 20110308
  Transmission Date: 20110831
  Serious: Yes (Hospitalization)
  Sender: FDA-Public Use
  Company Number: JP-1185306

PATIENT
  Age: 60 Year
  Sex: Female

DRUGS (1)
  1. FLUORESCITE [Suspect]
     Dosage: INTRAVENOUS BOLUS
     Route: 040

REACTIONS (2)
  - RENAL FAILURE [None]
  - HEPATIC FUNCTION ABNORMAL [None]
